FAERS Safety Report 8437092-9 (Version None)
Quarter: 2012Q2

REPORT INFORMATION
  Report Type: 
  Country: None (occurrence: None)
  Receive Date: 20120614
  Receipt Date: 20120605
  Transmission Date: 20120825
  Serious: Yes (Other)
  Sender: FDA-Public Use
  Company Number: KR-JNJFOC-20120314172

PATIENT
  Age: 4 Decade
  Sex: Male

DRUGS (1)
  1. CONCERTA [Suspect]
     Indication: MENTAL RETARDATION
     Route: 048

REACTIONS (1)
  - SCHIZOPHRENIA [None]
